FAERS Safety Report 15675372 (Version 1)
Quarter: 2018Q4

REPORT INFORMATION
  Report Type: Spontaneous
  Country: GB (occurrence: GB)
  Receive Date: 20181130
  Receipt Date: 20181130
  Transmission Date: 20190205
  Serious: Yes (Hospitalization, Other)
  Sender: FDA-Public Use
  Company Number: GB-ALKEM LABORATORIES LIMITED-CA-ALKEM-2018-07474

PATIENT
  Age: 60 Year
  Sex: Male

DRUGS (3)
  1. GLIBENCLAMIDE [Suspect]
     Active Substance: GLYBURIDE
     Indication: PRODUCT USED FOR UNKNOWN INDICATION
     Dosage: 5 MG, UNK, 20 TABLET
     Route: 065
  2. METFORMIN HYDROCHLORIDE. [Suspect]
     Active Substance: METFORMIN HYDROCHLORIDE
     Indication: PRODUCT USED FOR UNKNOWN INDICATION
     Dosage: 500 MG, 100 TABLET
     Route: 065
  3. IBUPROFEN. [Suspect]
     Active Substance: IBUPROFEN
     Indication: PRODUCT USED FOR UNKNOWN INDICATION
     Dosage: 400 MG, UNK, 20 TABLET
     Route: 065

REACTIONS (6)
  - Apnoea [Recovered/Resolved]
  - Circulatory collapse [Recovered/Resolved]
  - Anuria [Recovered/Resolved]
  - Metabolic acidosis [Recovered/Resolved]
  - Ventricular fibrillation [Recovered/Resolved]
  - Intentional overdose [Unknown]
